FAERS Safety Report 25728339 (Version 1)
Quarter: 2025Q3

REPORT INFORMATION
  Report Type: Spontaneous
  Country: US (occurrence: US)
  Receive Date: 20250826
  Receipt Date: 20250826
  Transmission Date: 20251021
  Serious: Yes (Death, Hospitalization)
  Sender: MYLAN
  Company Number: US-MYLANLABS-2025M1072072

PATIENT
  Age: 4 Year
  Sex: Female

DRUGS (4)
  1. DOXORUBICIN [Suspect]
     Active Substance: DOXORUBICIN
     Indication: Pleuropulmonary blastoma
  2. DACTINOMYCIN [Suspect]
     Active Substance: DACTINOMYCIN
     Indication: Pleuropulmonary blastoma
  3. IFOSFAMIDE [Suspect]
     Active Substance: IFOSFAMIDE
     Indication: Pleuropulmonary blastoma
  4. VINCRISTINE [Suspect]
     Active Substance: VINCRISTINE
     Indication: Pleuropulmonary blastoma

REACTIONS (2)
  - Drug ineffective [Fatal]
  - Disease progression [Fatal]
